FAERS Safety Report 5345318-3 (Version None)
Quarter: 2007Q2

REPORT INFORMATION
  Report Type: 
  Country: None (occurrence: None)
  Receive Date: 20070601
  Receipt Date: 20070524
  Transmission Date: 20071010
  Serious: Yes (Other)
  Sender: FDA-Public Use
  Company Number: 2007SP006898

PATIENT
  Age: 50 Year
  Sex: Female
  Weight: 64.8644 kg

DRUGS (2)
  1. PEG-INTRON [Suspect]
     Indication: HEPATITIS C
     Dosage: 96 MCG;SC
     Route: 058
     Dates: start: 20070323, end: 20070403
  2. REBETOL [Suspect]
     Indication: HEPATITIS C
     Dosage: 500 MG;BID;PO
     Route: 048
     Dates: start: 20070323, end: 20070403

REACTIONS (10)
  - ASTHENIA [None]
  - DIZZINESS [None]
  - HYPERTENSION [None]
  - HYPOVENTILATION [None]
  - LYMPHOCYTE PERCENTAGE INCREASED [None]
  - NAUSEA [None]
  - NEUTROPHIL PERCENTAGE DECREASED [None]
  - PHAEOCHROMOCYTOMA [None]
  - TACHYCARDIA [None]
  - WHITE BLOOD CELL COUNT DECREASED [None]
